FAERS Safety Report 6291998-8 (Version None)
Quarter: 2009Q3

REPORT INFORMATION
  Report Type: 
  Country: None (occurrence: None)
  Receive Date: 20090729
  Receipt Date: 20090720
  Transmission Date: 20100115
  Serious: Yes (Hospitalization)
  Sender: FDA-Public Use
  Company Number: 2009SP001873

PATIENT
  Sex: Male

DRUGS (1)
  1. XOPENEX [Suspect]
     Dosage: 1.25 MG/3ML; INHALATION; .63 MG/3ML; INHALATION

REACTIONS (3)
  - CATHETER RELATED COMPLICATION [None]
  - HERNIA REPAIR [None]
  - INTESTINAL RESECTION [None]
